FAERS Safety Report 8215054-4 (Version None)
Quarter: 2012Q1

REPORT INFORMATION
  Report Type: 
  Country: None (occurrence: None)
  Receive Date: 20120316
  Receipt Date: 20120306
  Transmission Date: 20120608
  Serious: Yes (Hospitalization)
  Sender: FDA-Public Use
  Company Number: US-ELI_LILLY_AND_COMPANY-US201203001819

PATIENT
  Sex: Female

DRUGS (5)
  1. DILTIAZEM HCL [Concomitant]
     Dosage: 90 MG, EVERY 8 HRS
  2. DIGOXIN [Concomitant]
     Dosage: 125 MG, QD
  3. ALDORIL 15 [Concomitant]
     Dosage: 1 DF, QD
  4. FORTEO [Suspect]
     Indication: OSTEOPOROSIS
     Dosage: 20 UG, QD
     Dates: start: 20100801, end: 20120210
  5. LISINOPRIL [Concomitant]

REACTIONS (5)
  - DIARRHOEA [None]
  - CARDIAC FAILURE CONGESTIVE [None]
  - BLOOD PRESSURE DECREASED [None]
  - DEHYDRATION [None]
  - BLOOD COUNT ABNORMAL [None]
